FAERS Safety Report 18473398 (Version 1)
Quarter: 2020Q4

REPORT INFORMATION
  Report Type: Spontaneous
  Country: CN (occurrence: CN)
  Receive Date: 20201106
  Receipt Date: 20201106
  Transmission Date: 20210114
  Serious: Yes (Hospitalization)
  Sender: FDA-Public Use
  Company Number: NVSC2020CN292421

PATIENT
  Age: 58 Year
  Sex: Female

DRUGS (3)
  1. TEGRETOL [Suspect]
     Active Substance: CARBAMAZEPINE
     Indication: HYPOAESTHESIA
     Dosage: 100 MG, BID
     Route: 048
     Dates: start: 20201005, end: 20201025
  2. LEUCOGEN [Concomitant]
     Active Substance: LEUCOGEN
     Indication: HYPOAESTHESIA
     Dosage: 20 MG, TID
     Route: 048
     Dates: start: 20201005, end: 20201025
  3. METHYCOBAL [Concomitant]
     Active Substance: METHYLCOBALAMIN
     Indication: HYPOAESTHESIA
     Dosage: 0.5 MG, TID
     Route: 048
     Dates: start: 20201005, end: 20201025

REACTIONS (1)
  - Drug eruption [Recovering/Resolving]

NARRATIVE: CASE EVENT DATE: 20201022
